FAERS Safety Report 4335072-6 (Version None)
Quarter: 2004Q2

REPORT INFORMATION
  Report Type: 
  Country: None (occurrence: None)
  Receive Date: 20040405
  Receipt Date: 20040326
  Transmission Date: 20050107
  Serious: Yes (Death, Hospitalization)
  Sender: FDA-Public Use
  Company Number: STA-AE-04-MTX-128

PATIENT
  Age: 85 Year
  Sex: Female

DRUGS (9)
  1. RHEUMATREX [Suspect]
     Indication: RHEUMATOID ARTHRITIS
     Dosage: 4 MG OR 6 MG WEEKLY ORAL
     Route: 048
     Dates: end: 20040217
  2. FOLIAMIN (FOLIC ACID) [Concomitant]
  3. MUCOSTA (REBAMIPIDE) [Concomitant]
  4. DORNER (BERAPROST SODIUM) [Concomitant]
  5. ALFACALICIDOL [Concomitant]
  6. UBRETID (DISTIGMINE BROMIDE) [Concomitant]
  7. FAMOTIDINE [Concomitant]
  8. AMLODIPINE BESYLATE [Concomitant]
  9. HALCION [Concomitant]

REACTIONS (11)
  - ACUTE RESPIRATORY DISTRESS SYNDROME [None]
  - ANAEMIA [None]
  - ANOREXIA [None]
  - HYPOKALAEMIA [None]
  - HYPOPROTEINAEMIA [None]
  - MULTI-ORGAN FAILURE [None]
  - PLATELET COUNT DECREASED [None]
  - PYREXIA [None]
  - RENAL FAILURE ACUTE [None]
  - STUPOR [None]
  - WHITE BLOOD CELL COUNT DECREASED [None]
